FAERS Safety Report 9880798 (Version 2)
Quarter: 2014Q1

REPORT INFORMATION
  Report Type: Spontaneous
  Country: GB (occurrence: None)
  Receive Date: 20140205
  Receipt Date: 20140218
  Transmission Date: 20141002
  Serious: Yes (Hospitalization)
  Sender: FDA-Public Use
  Company Number: KAD201401-000110

PATIENT
  Age: 52 Year
  Sex: Male

DRUGS (7)
  1. RIBAVIRIN [Suspect]
     Indication: HEPATITIS C
     Dates: start: 20131101, end: 20140121
  2. INCIVO (TELAPREVIR) [Suspect]
     Indication: HEPATITIS C
     Route: 048
     Dates: start: 20131101, end: 20140103
  3. INTERFERON ALFACON-L [Suspect]
     Indication: HEPATITIS C
     Dates: start: 20131101, end: 20140121
  4. LITHIUM CARBONATE (LITHIUM CARBONATE) [Concomitant]
  5. OLANZAPINE (OLANZAPINE) [Concomitant]
  6. THIAMINE (THIAMINE HYDROCHLORIDE, VITAMIN B SUBSTANCES) [Concomitant]
  7. VITAMIN B SUBSTANCES (VITAMIN B SUBSTANCES) [Concomitant]

REACTIONS (6)
  - Swelling face [None]
  - Rash [None]
  - Erythema [None]
  - Body temperature increased [None]
  - Eosinophil count increased [None]
  - Treatment noncompliance [None]
